FAERS Safety Report 9736312 (Version 1)
Quarter: 2013Q4

REPORT INFORMATION
  Report Type: Spontaneous
  Country: CH (occurrence: CH)
  Receive Date: 20131206
  Receipt Date: 20131206
  Transmission Date: 20140711
  Serious: Yes (Other)
  Sender: FDA-Public Use
  Company Number: CH-OTSUKA-US-2013-12244

PATIENT
  Sex: 0

DRUGS (1)
  1. BUSULFEX [Suspect]
     Dosage: UNK

REACTIONS (1)
  - Left ventricular dysfunction [Unknown]
